FAERS Safety Report 22124289 (Version 1)
Quarter: 2023Q1

REPORT INFORMATION
  Report Type: Spontaneous
  Country: US (occurrence: None)
  Receive Date: 20230321
  Receipt Date: 20230321
  Transmission Date: 20230418
  Serious: Yes (unspecified)
  Sender: FDA-Public Use
  Company Number: None

PATIENT
  Age: 58 Year
  Sex: Female
  Weight: 90 kg

DRUGS (2)
  1. ESTRADIOL [Suspect]
     Active Substance: ESTRADIOL
     Indication: Osteopenia
     Dosage: OTHER QUANTITY : 1 PATCH(ES);?OTHER FREQUENCY : TWICE WEEKLY;?
     Route: 062
     Dates: start: 20230307, end: 20230314
  2. ESTRADIOL [Suspect]
     Active Substance: ESTRADIOL
     Indication: Menopause

REACTIONS (10)
  - Peripheral swelling [None]
  - Erythema [None]
  - Abdominal pain [None]
  - Back pain [None]
  - Weight increased [None]
  - Pain in extremity [None]
  - Breast tenderness [None]
  - Headache [None]
  - Pain in extremity [None]
  - Pain [None]

NARRATIVE: CASE EVENT DATE: 20230319
